FAERS Safety Report 22032887 (Version 2)
Quarter: 2023Q2

REPORT INFORMATION
  Report Type: Other
  Country: US (occurrence: None)
  Receive Date: 20230224
  Receipt Date: 20230605
  Transmission Date: 20230721
  Serious: Yes (Other)
  Sender: FDA-Public Use
  Company Number: US-ROCHE-3289525

PATIENT
  Age: 75 Year
  Sex: Female
  Weight: 53.118 kg

DRUGS (10)
  1. ACTEMRA [Suspect]
     Active Substance: TOCILIZUMAB
     Indication: Iritis
     Dosage: INJECT 0.9ML (162MG TOTAL) SUBCUTANEOUSLY EVERY 14 DAY(S)
     Route: 058
  2. ACTEMRA [Suspect]
     Active Substance: TOCILIZUMAB
  3. ACTEMRA [Suspect]
     Active Substance: TOCILIZUMAB
  4. ACTEMRA [Suspect]
     Active Substance: TOCILIZUMAB
     Indication: Iridocyclitis
  5. ACTEMRA [Suspect]
     Active Substance: TOCILIZUMAB
  6. ACTEMRA [Suspect]
     Active Substance: TOCILIZUMAB
  7. ACTEMRA [Suspect]
     Active Substance: TOCILIZUMAB
     Indication: Uveitis
     Dosage: INJECTED INTO MY THIGHS
     Route: 058
     Dates: start: 2020
  8. ACTEMRA [Suspect]
     Active Substance: TOCILIZUMAB
  9. DUREZOL [Concomitant]
     Active Substance: DIFLUPREDNATE
     Indication: Uveitis
     Dosage: BOTH EYES
     Route: 047
  10. PROLENSA [Concomitant]
     Active Substance: BROMFENAC SODIUM
     Indication: Eye swelling
     Dosage: BOTH EYES
     Route: 047

REACTIONS (2)
  - Hip fracture [Unknown]
  - Off label use [Unknown]

NARRATIVE: CASE EVENT DATE: 20200101
